FAERS Safety Report 13150780 (Version 3)
Quarter: 2017Q1

REPORT INFORMATION
  Report Type: Spontaneous
  Country: JP (occurrence: JP)
  Receive Date: 20170125
  Receipt Date: 20170203
  Transmission Date: 20170428
  Serious: Yes (Hospitalization, Other)
  Sender: FDA-Public Use
  Company Number: JP-GLAXOSMITHKLINE-JP2017JPN007585

PATIENT
  Age: 80 Year
  Sex: Male

DRUGS (3)
  1. SAMSCA [Concomitant]
     Active Substance: TOLVAPTAN
     Dosage: UNK
  2. SPIRIVA [Concomitant]
     Active Substance: TIOTROPIUM BROMIDE MONOHYDRATE
     Dosage: UNK
  3. SERETIDE [Suspect]
     Active Substance: FLUTICASONE PROPIONATE\SALMETEROL XINAFOATE
     Indication: EMPHYSEMA
     Dosage: 250 ?G, BID
     Route: 055

REACTIONS (5)
  - Pneumonia [Unknown]
  - Hyponatraemia [Recovered/Resolved]
  - Secondary adrenocortical insufficiency [Recovered/Resolved]
  - Hypoglycaemia [Recovered/Resolved]
  - Myocardial infarction [Unknown]

NARRATIVE: CASE EVENT DATE: 2016
